FAERS Safety Report 8061015-8 (Version None)
Quarter: 2012Q1

REPORT INFORMATION
  Report Type: 
  Country: None (occurrence: None)
  Receive Date: 20120120
  Receipt Date: 20120116
  Transmission Date: 20120608
  Serious: Yes (Other)
  Sender: FDA-Public Use
  Company Number: US-AMGEN-USASP2011061614

PATIENT
  Sex: Female

DRUGS (2)
  1. ENBREL [Suspect]
     Indication: RHEUMATOID ARTHRITIS
     Dosage: 50 MG, QWK
     Dates: start: 20080101
  2. ENBREL [Suspect]
     Dosage: 50 MG, QWK
     Dates: start: 20060307

REACTIONS (6)
  - WRIST DEFORMITY [None]
  - PAIN [None]
  - JOINT DISLOCATION [None]
  - ARTHRALGIA [None]
  - RADIAL NERVE PALSY [None]
  - MUSCULOSKELETAL STIFFNESS [None]
